FAERS Safety Report 5269360-6 (Version None)
Quarter: 2007Q1

REPORT INFORMATION
  Report Type: 
  Country: None (occurrence: None)
  Receive Date: 20070319
  Receipt Date: 20070307
  Transmission Date: 20070707
  Serious: Yes (Hospitalization)
  Sender: FDA-Public Use
  Company Number: FR-PFIZER INC-2007018440

PATIENT
  Age: 31 Year
  Sex: Female

DRUGS (5)
  1. ADRIBLASTINE [Suspect]
     Indication: NON-HODGKIN'S LYMPHOMA
     Dosage: DAILY DOSE:64MG
     Route: 042
     Dates: start: 20070119, end: 20070119
  2. CYCLOPHOSPHAMIDE [Suspect]
     Indication: NON-HODGKIN'S LYMPHOMA
     Dosage: DAILY DOSE:940MG
     Route: 042
     Dates: start: 20070119, end: 20070119
  3. VINCRISTINE [Suspect]
     Indication: NON-HODGKIN'S LYMPHOMA
     Dosage: DAILY DOSE:1.8MG
     Route: 042
     Dates: start: 20070119, end: 20070119
  4. DEXAMETHASONE [Suspect]
     Indication: NON-HODGKIN'S LYMPHOMA
     Dosage: DAILY DOSE:20MG
     Route: 042
     Dates: start: 20070119, end: 20070119
  5. RITUXIMAB [Suspect]
     Indication: NON-HODGKIN'S LYMPHOMA
     Dosage: DAILY DOSE:500MG
     Route: 042
     Dates: start: 20070119, end: 20070119

REACTIONS (4)
  - ALANINE AMINOTRANSFERASE INCREASED [None]
  - ASPARTATE AMINOTRANSFERASE INCREASED [None]
  - BLOOD LACTATE DEHYDROGENASE INCREASED [None]
  - GAMMA-GLUTAMYLTRANSFERASE INCREASED [None]
